FAERS Safety Report 7483335-8 (Version None)
Quarter: 2011Q2

REPORT INFORMATION
  Report Type: 
  Country: None (occurrence: None)
  Receive Date: 20110517
  Receipt Date: 20110411
  Transmission Date: 20111010
  Serious: Yes (Hospitalization, Other)
  Sender: FDA-Public Use
  Company Number: US-BAYER-201039687NA

PATIENT
  Age: 41 Year
  Sex: Female
  Weight: 122.45 kg

DRUGS (2)
  1. MOTRIN [Concomitant]
     Dosage: UNK
     Dates: start: 19990101, end: 20030101
  2. YASMIN [Suspect]
     Indication: PRODUCT USED FOR UNKNOWN INDICATION
     Route: 048
     Dates: start: 20030401, end: 20040101

REACTIONS (2)
  - THROMBOSIS [None]
  - DEEP VEIN THROMBOSIS [None]
